FAERS Safety Report 7101548-1 (Version None)
Quarter: 2010Q4

REPORT INFORMATION
  Report Type: 
  Country: None (occurrence: None)
  Receive Date: 20101115
  Receipt Date: 20101111
  Transmission Date: 20110411
  Serious: Yes (Other)
  Sender: FDA-Public Use
  Company Number: CN-PFIZER INC-2010140967

PATIENT
  Age: 74 Year
  Sex: Male

DRUGS (1)
  1. SOLU-MEDROL [Suspect]
     Indication: IGA NEPHROPATHY
     Dosage: 40 MG, 1X/DAY
     Route: 042

REACTIONS (1)
  - DRUG ERUPTION [None]
